FAERS Safety Report 7141362-4 (Version None)
Quarter: 2010Q4

REPORT INFORMATION
  Report Type: 
  Country: None (occurrence: None)
  Receive Date: 20101203
  Receipt Date: 20101203
  Transmission Date: 20110411
  Serious: Yes (Hospitalization)
  Sender: FDA-Public Use
  Company Number: None

PATIENT
  Sex: Female
  Weight: 80.2867 kg

DRUGS (3)
  1. AMRUBICIN 40MG/M2 [Suspect]
     Indication: SMALL CELL LUNG CANCER STAGE UNSPECIFIED
     Dosage: 70 MG, DAYS 1-3, IV
     Route: 042
     Dates: start: 20101129, end: 20101201
  2. PALONOSETRON [Concomitant]
  3. NORMAL SALINE [Concomitant]

REACTIONS (3)
  - DIZZINESS [None]
  - LETHARGY [None]
  - SOMNOLENCE [None]
